FAERS Safety Report 10010912 (Version 1)
Quarter: 2014Q1

REPORT INFORMATION
  Report Type: Report from Study
  Country: US (occurrence: US)
  Receive Date: 20140314
  Receipt Date: 20140314
  Transmission Date: 20141002
  Serious: Yes (Death, Other)
  Sender: FDA-Public Use
  Company Number: US-ROCHE-1358636

PATIENT
  Sex: 0

DRUGS (2)
  1. CAPECITABINE [Suspect]
     Indication: PANCREATIC CARCINOMA METASTATIC
     Dosage: FROM DAY 1 THROUGH DAY 14 OF A 21 DAY CYCLE, STARTING DOSE AT LEAST 1 H AFTER THE FIRST DOSE OF DOCE
     Route: 048
  2. DOCETAXEL [Suspect]
     Indication: PANCREATIC CARCINOMA METASTATIC
     Dosage: ON DAYS 1 AND 8 OF 21 DAY CYCLE.
     Route: 042

REACTIONS (12)
  - Pneumonia [Fatal]
  - Neuropathy peripheral [Unknown]
  - Fatigue [Unknown]
  - Infection [Unknown]
  - Nausea [Unknown]
  - Diarrhoea [Unknown]
  - Palmar-plantar erythrodysaesthesia syndrome [Unknown]
  - Mucosal inflammation [Unknown]
  - Pneumonitis [Unknown]
  - Pleural effusion [Unknown]
  - Vomiting [Unknown]
  - Anaemia [Unknown]
